FAERS Safety Report 15231778 (Version 11)
Quarter: 2023Q2

REPORT INFORMATION
  Report Type: Report from Study
  Country: ES (occurrence: None)
  Receive Date: 20180802
  Receipt Date: 20230608
  Transmission Date: 20230722
  Serious: Yes (Hospitalization)
  Sender: FDA-Public Use
  Company Number: ES-ROCHE-2158740

PATIENT
  Age: 69 Year
  Sex: Female
  Weight: 43.1 kg

DRUGS (15)
  1. ATEZOLIZUMAB [Suspect]
     Active Substance: ATEZOLIZUMAB
     Indication: Non-small cell lung cancer metastatic
     Dosage: MOST RECENT DOSE OF ATEZOLIZUMAB 1200 MG PRIOR TO SAES: 09/JUL/2018
     Route: 041
     Dates: start: 20180709
  2. FERROUS SULFATE [Concomitant]
     Active Substance: FERROUS SULFATE
     Indication: Microcytic anaemia
     Route: 048
     Dates: start: 20180629
  3. CYANOCOBALAMIN\FOLIC ACID [Concomitant]
     Active Substance: CYANOCOBALAMIN\FOLIC ACID
     Indication: Premedication
     Dosage: QD (EVERY DAY)
     Route: 048
     Dates: start: 20180619, end: 20180709
  4. HUMAN RED BLOOD CELL [Concomitant]
     Active Substance: HUMAN RED BLOOD CELL
     Indication: Anaemia
     Dosage: TRANSFUSION
     Route: 042
     Dates: start: 20180721, end: 20180721
  5. MYCOSTATIN [Concomitant]
     Active Substance: NYSTATIN
     Indication: Oral candidiasis
     Route: 048
     Dates: start: 20180806, end: 20180816
  6. ACETAMINOPHEN [Concomitant]
     Active Substance: ACETAMINOPHEN
     Indication: Pain
     Dosage: PRN (AS NEEDED)
     Route: 048
  7. AMLODIPINE [Concomitant]
     Active Substance: AMLODIPINE BESYLATE
     Indication: Hypertension
     Dosage: PRN (AS NEEDED)
     Route: 048
     Dates: start: 20180722
  8. LACTOBACILLUS ACIDOPHILUS [Concomitant]
     Active Substance: LACTOBACILLUS ACIDOPHILUS
     Indication: Prophylaxis against diarrhoea
     Route: 048
     Dates: start: 20180801, end: 20180802
  9. PANTOPRAZOLE SODIUM [Concomitant]
     Active Substance: PANTOPRAZOLE SODIUM
     Indication: Gastrointestinal disorder prophylaxis
     Route: 048
     Dates: start: 20180728
  10. BEMIPARINA SODICA [Concomitant]
     Indication: Thrombosis prophylaxis
     Route: 058
     Dates: start: 20180728, end: 20180802
  11. SULFAMETHOXAZOLE\TRIMETHOPRIM [Concomitant]
     Active Substance: SULFAMETHOXAZOLE\TRIMETHOPRIM
     Route: 048
     Dates: start: 20180806
  12. CYANOCOBALAMIN\FOLIC ACID [Concomitant]
     Active Substance: CYANOCOBALAMIN\FOLIC ACID
     Dosage: 400 OTHER
     Route: 048
     Dates: start: 20180806
  13. DIAZEPAM [Concomitant]
     Active Substance: DIAZEPAM
     Indication: Seizure
     Route: 054
     Dates: start: 20180722, end: 20180722
  14. DIAZEPAM [Concomitant]
     Active Substance: DIAZEPAM
     Route: 054
     Dates: start: 20180722, end: 20180722
  15. ENEMAC [Concomitant]
     Indication: Constipation
     Route: 054
     Dates: start: 20180722, end: 20180722

REACTIONS (3)
  - Noninfective encephalitis [Recovered/Resolved]
  - Respiratory failure [Recovered/Resolved]
  - Urinary tract infection [Recovered/Resolved]

NARRATIVE: CASE EVENT DATE: 20180718
